FAERS Safety Report 5108150-1 (Version None)
Quarter: 2006Q3

REPORT INFORMATION
  Report Type: 
  Country: None (occurrence: None)
  Receive Date: 20060919
  Receipt Date: 20060918
  Transmission Date: 20061208
  Serious: Yes (Hospitalization)
  Sender: FDA-Public Use
  Company Number: FR-GLAXOSMITHKLINE-B0438455A

PATIENT
  Age: 26 Year
  Sex: Female
  Weight: 60 kg

DRUGS (6)
  1. AUGMENTIN '125' [Suspect]
     Dosage: 1UNIT SINGLE DOSE
     Route: 042
     Dates: start: 20060818, end: 20060818
  2. RANIPLEX [Concomitant]
     Dosage: 150MG PER DAY
     Route: 048
     Dates: start: 20060818, end: 20060819
  3. LOVENOX [Concomitant]
     Route: 065
     Dates: end: 20060819
  4. ACETAMINOPHEN [Concomitant]
     Route: 042
     Dates: end: 20060819
  5. PYOSTACINE [Concomitant]
     Dosage: 2TAB TWICE PER DAY
     Route: 048
  6. HYPNOVEL [Concomitant]
     Dosage: 1UNIT PER DAY
     Route: 042
     Dates: start: 20060818, end: 20060818

REACTIONS (4)
  - ANAPHYLACTIC SHOCK [None]
  - ANGIONEUROTIC OEDEMA [None]
  - CARDIOPULMONARY FAILURE [None]
  - CIRCULATORY COLLAPSE [None]
